FAERS Safety Report 13704964 (Version 1)
Quarter: 2017Q2

REPORT INFORMATION
  Report Type: Spontaneous
  Country: US (occurrence: US)
  Receive Date: 20170629
  Receipt Date: 20170629
  Transmission Date: 20170830
  Serious: Yes (Disabling)
  Sender: FDA-Public Use
  Company Number: None

PATIENT
  Age: 25 Year
  Sex: Female
  Weight: 67.5 kg

DRUGS (1)
  1. CIPROFLOXACIN 500MG TAB TEV [Suspect]
     Active Substance: CIPROFLOXACIN
     Indication: URINARY TRACT INFECTION
     Dosage: ?          OTHER STRENGTH:MG/MG;QUANTITY:1 TABLET(S); EVERY 12 HOURS ORAL?
     Route: 048

REACTIONS (8)
  - Amnesia [None]
  - Mood swings [None]
  - Anxiety [None]
  - Educational problem [None]
  - Deafness [None]
  - Paraesthesia [None]
  - Aphasia [None]
  - Cognitive disorder [None]

NARRATIVE: CASE EVENT DATE: 20150925
